FAERS Safety Report 4933276-2 (Version None)
Quarter: 2006Q1

REPORT INFORMATION
  Report Type: 
  Country: None (occurrence: None)
  Receive Date: 20060306
  Receipt Date: 20060223
  Transmission Date: 20060701
  Serious: Yes (Life-Threatening)
  Sender: FDA-Public Use
  Company Number: JP-MERCK-0603USA00341

PATIENT
  Age: 63 Year
  Sex: Male

DRUGS (3)
  1. PEPCID RPD [Suspect]
     Route: 048
     Dates: start: 20051024, end: 20051206
  2. DEPAKENE [Suspect]
     Route: 048
     Dates: start: 20051024, end: 20051206
  3. [THERAPY UNSPECIFIED] [Concomitant]
     Route: 065

REACTIONS (1)
  - APLASTIC ANAEMIA [None]
